FAERS Safety Report 9947292 (Version 1)
Quarter: 2014Q1

REPORT INFORMATION
  Report Type: Report from Study
  Country: US (occurrence: US)
  Receive Date: 20140303
  Receipt Date: 20140303
  Transmission Date: 20141002
  Serious: No
  Sender: FDA-Public Use
  Company Number: US-ABBVIE-13P-163-1058558-00

PATIENT
  Age: 32 Year
  Sex: Female
  Weight: 54.48 kg

DRUGS (7)
  1. HUMIRA [Suspect]
     Indication: RHEUMATOID ARTHRITIS
     Dates: start: 201207
  2. HUMIRA [Suspect]
     Indication: ANKYLOSING SPONDYLITIS
  3. OTHOTEC [Concomitant]
     Indication: RHEUMATOID ARTHRITIS
  4. NEXIUM [Concomitant]
     Indication: GASTROOESOPHAGEAL REFLUX DISEASE
  5. ZANTAC [Concomitant]
     Indication: GASTROOESOPHAGEAL REFLUX DISEASE
  6. TOPOMAX [Concomitant]
     Indication: MIGRAINE
  7. FOLIC ACID [Concomitant]
     Indication: PRODUCT USED FOR UNKNOWN INDICATION

REACTIONS (3)
  - Photophobia [Recovered/Resolved]
  - Migraine [Recovered/Resolved]
  - Vomiting [Recovered/Resolved]
